FAERS Safety Report 7659234-5 (Version None)
Quarter: 2011Q3

REPORT INFORMATION
  Report Type: 
  Country: None (occurrence: None)
  Receive Date: 20110805
  Receipt Date: 20081107
  Transmission Date: 20111222
  Serious: Yes (Hospitalization)
  Sender: FDA-Public Use
  Company Number: US-ROCHE-592905

PATIENT
  Sex: Female
  Weight: 117 kg

DRUGS (21)
  1. ADVAIR DISKUS 100/50 [Concomitant]
     Dates: start: 19980101
  2. LOMOTIL [Concomitant]
     Dates: start: 20081016
  3. BEVACIZUMAB [Suspect]
     Dosage: TOTAL DOSE: 1770 MG; FORM: VIALS; LAST DOSE PRIOR TO EVENT ON 9 OCT 2008
     Route: 042
     Dates: start: 20081009
  4. PHENERGAN HCL [Concomitant]
     Dates: start: 20081016
  5. KYTRIL [Concomitant]
     Dates: start: 20081016
  6. TRASTUZUMAB [Suspect]
     Dosage: DOSE: 708.
     Route: 042
     Dates: start: 20081009
  7. AMITRIPTYLINE HCL [Concomitant]
     Dates: start: 20070401
  8. NASONEX [Concomitant]
     Dates: start: 20020101
  9. CELLWISE [Concomitant]
     Dates: start: 20070101
  10. TRASTUZUMAB [Suspect]
     Dosage: TOTAL DOSE: 940 MG; FORM : VIALS; LAST DOSE PROR TO EVENT ON 9 OCT 08
     Route: 042
     Dates: start: 20081009
  11. XANAX [Concomitant]
     Dates: start: 20030101
  12. KYTRIL [Concomitant]
     Dates: start: 20081017
  13. DOCETAXEL [Suspect]
     Dosage: FORM: VIALS; TOTAL DOSE: 172; LAST DOSE PRIOR TO EVENT ON 9 OCT 08
     Route: 042
     Dates: start: 20081009
  14. PAXIL [Concomitant]
     Dates: start: 20070401
  15. ESTRAVAL [Concomitant]
     Dates: start: 20080401
  16. SARGAMOSTIM [Suspect]
     Route: 030
     Dates: start: 20081103
  17. GABAPENTIN [Concomitant]
     Dates: start: 20070401
  18. MULTI-VITAMIN [Concomitant]
     Dates: start: 20071001
  19. CARBOPLATIN [Suspect]
     Dosage: DOSAGE: 6 AUC; TOTAL DOSE 1130 MG; FORM VIAL; LAST DOSE PRIOR TO EVENT ON 9 OCT 08.
     Route: 042
     Dates: start: 20081009
  20. SYNTHROID [Concomitant]
     Dates: start: 20010901
  21. ESTRAVAL [Concomitant]
     Dates: start: 20071001

REACTIONS (3)
  - PNEUMONIA [None]
  - DIVERTICULITIS [None]
  - CHEST PAIN [None]
